FAERS Safety Report 13202205 (Version 1)
Quarter: 2017Q1

REPORT INFORMATION
  Report Type: Spontaneous
  Country: US (occurrence: US)
  Receive Date: 20170209
  Receipt Date: 20170209
  Transmission Date: 20170428
  Serious: No
  Sender: FDA-Public Use
  Company Number: US-ELI_LILLY_AND_COMPANY-US201608001862

PATIENT
  Sex: Female
  Weight: 59.41 kg

DRUGS (1)
  1. CYMBALTA [Suspect]
     Active Substance: DULOXETINE HYDROCHLORIDE
     Indication: DEPRESSION
     Dosage: UNK, UNKNOWN
     Route: 065

REACTIONS (12)
  - Drug withdrawal syndrome [Unknown]
  - Anxiety [Unknown]
  - Lethargy [Unknown]
  - Abulia [Unknown]
  - Insomnia [Unknown]
  - Anhedonia [Unknown]
  - Dysphoria [Unknown]
  - Affect lability [Unknown]
  - Disturbance in attention [Unknown]
  - Confusional state [Unknown]
  - Fatigue [Unknown]
  - Agitation [Unknown]
